FAERS Safety Report 7632848-4 (Version None)
Quarter: 2011Q3

REPORT INFORMATION
  Report Type: 
  Country: None (occurrence: None)
  Receive Date: 20110725
  Receipt Date: 20110118
  Transmission Date: 20111222
  Serious: Yes (Other)
  Sender: FDA-Public Use
  Company Number: PHHO2011SN11742

PATIENT
  Sex: Male

DRUGS (1)
  1. AMLODIPINE BESYLATE/VALSARTAN [Suspect]
     Indication: HYPERTENSION

REACTIONS (2)
  - DRY MOUTH [None]
  - MYOCLONUS [None]
